FAERS Safety Report 22653933 (Version 1)
Quarter: 2023Q2

REPORT INFORMATION
  Report Type: Spontaneous
  Country: US (occurrence: US)
  Receive Date: 20230629
  Receipt Date: 20230629
  Transmission Date: 20230721
  Serious: Yes (Hospitalization)
  Sender: FDA-Public Use
  Company Number: US-SA-SAC20230628001618

PATIENT
  Sex: Female

DRUGS (1)
  1. DUPIXENT [Suspect]
     Active Substance: DUPILUMAB
     Dosage: 300MG, QOW
     Route: 058

REACTIONS (5)
  - Pelvic floor repair [Not Recovered/Not Resolved]
  - Procedural complication [Not Recovered/Not Resolved]
  - Internal haemorrhage [Not Recovered/Not Resolved]
  - Urinary bladder haematoma [Not Recovered/Not Resolved]
  - Vessel perforation [Not Recovered/Not Resolved]

NARRATIVE: CASE EVENT DATE: 20230101
